FAERS Safety Report 4471555-6 (Version None)
Quarter: 2004Q4

REPORT INFORMATION
  Report Type: 
  Country: None (occurrence: None)
  Receive Date: 20041006
  Receipt Date: 20040929
  Transmission Date: 20050328
  Serious: Yes (Life-Threatening, Hospitalization)
  Sender: FDA-Public Use
  Company Number: 209163

PATIENT
  Age: 21 Year
  Sex: Female
  Weight: 60 kg

DRUGS (1)
  1. XOLAIR [Suspect]
     Indication: ASTHMA
     Dosage: SUBCUTANEOUS
     Route: 058
     Dates: start: 20040917

REACTIONS (4)
  - DRUG INEFFECTIVE [None]
  - LARYNGEAL OBSTRUCTION [None]
  - RESPIRATORY ARREST [None]
  - TRACHEAL OBSTRUCTION [None]
